FAERS Safety Report 9691435 (Version 2)
Quarter: 2013Q4

REPORT INFORMATION
  Report Type: Spontaneous
  Country: US (occurrence: US)
  Receive Date: 20131115
  Receipt Date: 20131115
  Transmission Date: 20140711
  Serious: Yes (Hospitalization)
  Sender: FDA-Public Use
  Company Number: US-B.I. PHARMACEUTICALS,INC./RIDGEFIELD-2013-BI-15466BP

PATIENT
  Age: 76 Year
  Sex: Female
  Weight: 91.63 kg

DRUGS (13)
  1. PRADAXA [Suspect]
     Indication: ANTICOAGULANT THERAPY
     Route: 048
     Dates: start: 20110517, end: 20120201
  2. PRADAXA [Suspect]
     Indication: ATRIAL FIBRILLATION
  3. ALBUTEROL [Concomitant]
     Dosage: 2 PUF
  4. AMIODARONE [Concomitant]
     Dosage: 200 MG
  5. ASPIRIN [Concomitant]
     Dosage: 81 MG
  6. CLONIDINE [Concomitant]
     Dosage: 0.0429 MG
     Route: 062
  7. COZAAR [Concomitant]
     Dosage: 50 MG
  8. HYDRALAZINE [Concomitant]
     Dosage: 25 MG
  9. LASIX [Concomitant]
     Dosage: 25 MG
  10. LOPERAMIDE [Concomitant]
     Dosage: 2 RT
  11. PAXIL [Concomitant]
     Dosage: 20 MG
  12. SIMVASTATIN [Concomitant]
  13. VICODIN [Concomitant]

REACTIONS (3)
  - Gastrointestinal haemorrhage [Unknown]
  - Anaemia [Unknown]
  - Gastritis [Unknown]
